FAERS Safety Report 5571725-X (Version None)
Quarter: 2007Q4

REPORT INFORMATION
  Report Type: 
  Country: None (occurrence: None)
  Receive Date: 20071221
  Receipt Date: 20071218
  Transmission Date: 20080405
  Serious: Yes (Hospitalization)
  Sender: FDA-Public Use
  Company Number: A0699588A

PATIENT
  Age: 75 Year
  Sex: Male
  Weight: 65 kg

DRUGS (6)
  1. TOPOTECAN HYDROCHLORIDE [Suspect]
     Route: 048
  2. RADIATION [Suspect]
     Dosage: 3GY PER DAY
     Dates: start: 20071204
  3. DEXAVEN [Concomitant]
     Dosage: 8MG TWICE PER DAY
     Route: 042
     Dates: start: 20071218
  4. CYCLONAMINE [Concomitant]
     Dosage: 250MG THREE TIMES PER DAY
     Route: 042
     Dates: start: 20071218
  5. AUGMENTIN '125' [Concomitant]
     Indication: INFECTION PROPHYLAXIS
     Dosage: 1.2G THREE TIMES PER DAY
     Route: 042
     Dates: start: 20071218
  6. MICONAZOLE [Concomitant]
     Indication: ORAL CANDIDIASIS
     Dosage: 200MG PER DAY
     Route: 042
     Dates: start: 20071218

REACTIONS (4)
  - ASTHENIA [None]
  - LEUKOPENIA [None]
  - ORAL CANDIDIASIS [None]
  - PLATELET COUNT DECREASED [None]
